FAERS Safety Report 16539026 (Version 1)
Quarter: 2019Q3

REPORT INFORMATION
  Report Type: Spontaneous
  Country: US (occurrence: US)
  Receive Date: 20190705
  Receipt Date: 20190705
  Transmission Date: 20191004
  Serious: No
  Sender: FDA-Public Use
  Company Number: None

PATIENT
  Sex: Female

DRUGS (1)
  1. PURALUBE [Suspect]
     Active Substance: MINERAL OIL\PETROLATUM
     Indication: DRY EYE
     Route: 047
     Dates: start: 20190513, end: 20190522

REACTIONS (3)
  - Eye irritation [None]
  - Instillation site erythema [None]
  - Instillation site irritation [None]

NARRATIVE: CASE EVENT DATE: 20190515
